FAERS Safety Report 9476616 (Version 1)
Quarter: 2013Q3

REPORT INFORMATION
  Report Type: Spontaneous
  Country: IN (occurrence: IN)
  Receive Date: 20130826
  Receipt Date: 20130826
  Transmission Date: 20140515
  Serious: Yes (Hospitalization)
  Sender: FDA-Public Use
  Company Number: IN-BAYER-2013-101116

PATIENT
  Age: 70 Year
  Sex: Male

DRUGS (1)
  1. IOPROMIDE 370 [Suspect]
     Indication: ARTERIOGRAM CORONARY
     Dosage: 50 ML, ONCE

REACTIONS (2)
  - Sialoadenitis [Recovered/Resolved]
  - Dacryoadenitis acquired [Recovered/Resolved]
